FAERS Safety Report 8483953-4 (Version None)
Quarter: 2012Q3

REPORT INFORMATION
  Report Type: 
  Country: None (occurrence: None)
  Receive Date: 20120703
  Receipt Date: 20120627
  Transmission Date: 20120928
  Serious: No
  Sender: FDA-Public Use
  Company Number: US-PFIZER INC-2012155008

PATIENT
  Sex: Female
  Weight: 83.084 kg

DRUGS (4)
  1. ATIVAN [Concomitant]
     Dosage: UNK
  2. ESTRACE [Concomitant]
     Dosage: UNK
  3. LYRICA [Suspect]
     Dosage: 200 MG, 2X/DAY (1 PO BID)
     Route: 048
  4. XALATAN [Concomitant]
     Dosage: UNK

REACTIONS (6)
  - VISION BLURRED [None]
  - EYE IRRITATION [None]
  - DISCOMFORT [None]
  - CORRECTIVE LENS USER [None]
  - DRUG INEFFECTIVE [None]
  - FEELING HOT [None]
